FAERS Safety Report 10866460 (Version 1)
Quarter: 2015Q1

REPORT INFORMATION
  Report Type: Spontaneous
  Country: US (occurrence: None)
  Receive Date: 20150219
  Receipt Date: 20150219
  Transmission Date: 20150721
  Serious: Yes (Life-Threatening, Hospitalization)
  Sender: FDA-Public Use
  Company Number: None

PATIENT
  Age: 87 Year
  Sex: Male
  Weight: 78 kg

DRUGS (15)
  1. SYMBICORT [Concomitant]
     Active Substance: BUDESONIDE\FORMOTEROL FUMARATE DIHYDRATE
  2. TERAZOSIN (HYTRIN) [Concomitant]
  3. SPIRONOLACTONE (ALDACTONE) [Concomitant]
  4. ALBUTEROL (PROAIR HFA) [Concomitant]
  5. AMIODARONE (CORDARONE) [Concomitant]
  6. CARVEDILOL (COREG) [Concomitant]
  7. POLYETHYLENE GLYCOL (MIRALAX) [Concomitant]
  8. DIGOXIN 0.125 MG [Suspect]
     Active Substance: DIGOXIN
     Indication: ATRIAL FIBRILLATION
     Dosage: 1 TABLET QD ORAL
     Route: 048
  9. SIMVASTATIN (ZOCOR) [Concomitant]
  10. ASPIRIN. [Concomitant]
     Active Substance: ASPIRIN
  11. FUROSEMIDE (LASIX) [Concomitant]
  12. DIGOXIN (LANOXIN) [Concomitant]
  13. OMEPRAZOLE (PRILOSEC) [Concomitant]
  14. SPIRIVA [Concomitant]
     Active Substance: TIOTROPIUM BROMIDE MONOHYDRATE
  15. PROSCAR [Concomitant]
     Active Substance: FINASTERIDE

REACTIONS (6)
  - Asthenia [None]
  - Sinus bradycardia [None]
  - Muscular weakness [None]
  - Cardioactive drug level increased [None]
  - Renal impairment [None]
  - Nodal rhythm [None]

NARRATIVE: CASE EVENT DATE: 20140513
